FAERS Safety Report 5141809-9 (Version None)
Quarter: 2006Q4

REPORT INFORMATION
  Report Type: 
  Country: None (occurrence: None)
  Receive Date: 20061027
  Receipt Date: 20061016
  Transmission Date: 20070319
  Serious: Yes (Hospitalization, Other)
  Sender: FDA-Public Use
  Company Number: 2006114588

PATIENT
  Age: 70 Year
  Sex: Male

DRUGS (9)
  1. LYRICA [Suspect]
     Indication: NERVE ROOT LESION
     Dosage: (150 MG, 1 IN 1 D)
     Dates: start: 20060729, end: 20060802
  2. LYRICA [Suspect]
     Indication: POLYNEUROPATHY
     Dosage: (150 MG, 1 IN 1 D)
     Dates: start: 20060729, end: 20060802
  3. KARDEGIC (ACETYLSALICYLIC LYSINE) [Concomitant]
  4. POTASSIUM CHLORIDE [Concomitant]
  5. DILTIAZEM [Concomitant]
  6. HYTACAND (CANDESARTAN CILEXETIL, HYDROCHLOROTHIAZIDE) [Concomitant]
  7. OMEPRAZOLE (OMEPERAZOLE) [Concomitant]
  8. SOLUPRED (PREDNISOLONE SODIUM SULFOBENZOAE) [Concomitant]
  9. ATORVASTATIN CALCIUM [Concomitant]

REACTIONS (5)
  - ALCOHOL POISONING [None]
  - CHRONIC OBSTRUCTIVE PULMONARY DISEASE [None]
  - HYPOTENSION [None]
  - INFECTION [None]
  - SEDATION [None]
